FAERS Safety Report 21134043 (Version 1)
Quarter: 2022Q3

REPORT INFORMATION
  Report Type: Spontaneous
  Country: US (occurrence: US)
  Receive Date: 20220726
  Receipt Date: 20220726
  Transmission Date: 20221027
  Serious: Yes (Death, Other)
  Sender: FDA-Public Use
  Company Number: US-SA-SAC20220722001889

PATIENT
  Age: 77 Year
  Sex: Female

DRUGS (1)
  1. ZANTAC [Suspect]
     Active Substance: RANITIDINE HYDROCHLORIDE
     Indication: Gastrooesophageal reflux disease
     Dosage: UNK: OTHER
     Dates: start: 200401, end: 200801

REACTIONS (3)
  - Colorectal cancer stage III [Fatal]
  - Hepatic cancer stage III [Fatal]
  - Small intestine carcinoma stage III [Fatal]

NARRATIVE: CASE EVENT DATE: 20180301
